FAERS Safety Report 9075642 (Version 1)
Quarter: 2013Q1

REPORT INFORMATION
  Report Type: Report from Study
  Country: US (occurrence: US)
  Receive Date: 20130129
  Receipt Date: 20130129
  Transmission Date: 20140127
  Serious: No
  Sender: FDA-Public Use
  Company Number: US-ABBOTT-12P-163-0906385-00

PATIENT
  Age: 18 Year
  Sex: Male

DRUGS (6)
  1. HUMIRA 40 MG/0.8 ML PEN [Suspect]
     Indication: CROHN^S DISEASE
     Dates: start: 20120112, end: 20120112
  2. HUMIRA 40 MG/0.8 ML PEN [Suspect]
     Dates: start: 20120126, end: 20120126
  3. HUMIRA 40 MG/0.8 ML PEN [Suspect]
     Dates: start: 20120209
  4. PERCOCET [Concomitant]
     Indication: PRODUCT USED FOR UNKNOWN INDICATION
     Dosage: ONCE A DAY, 5/325
     Route: 048
  5. AMBIEN [Concomitant]
     Indication: INSOMNIA
  6. MULTIVITAMINS [Concomitant]
     Indication: PRODUCT USED FOR UNKNOWN INDICATION

REACTIONS (2)
  - White blood cell count abnormal [Not Recovered/Not Resolved]
  - Hypothyroidism [Unknown]
